FAERS Safety Report 10076380 (Version 1)
Quarter: 2014Q2

REPORT INFORMATION
  Report Type: Spontaneous
  Country: US (occurrence: US)
  Receive Date: 20140414
  Receipt Date: 20140414
  Transmission Date: 20141212
  Serious: No
  Sender: FDA-Public Use
  Company Number: US-PFIZER INC-2014103909

PATIENT
  Sex: Female

DRUGS (4)
  1. ADVIL [Suspect]
     Indication: PAIN
     Dosage: UNK, EVERY 6 HOURS
  2. ACETYLSALICYLIC ACID [Suspect]
     Dosage: UNK
  3. EXCEDRIN (ASPIRIN/CAFFEINE/PARACETAMOL) [Suspect]
     Indication: PAIN
     Dosage: UNK
  4. ALEVE [Suspect]
     Indication: PAIN
     Dosage: UNK

REACTIONS (1)
  - Drug ineffective [Unknown]
